FAERS Safety Report 21987325 (Version 3)
Quarter: 2024Q3

REPORT INFORMATION
  Report Type: Spontaneous
  Country: BR (occurrence: BR)
  Receive Date: 20230214
  Receipt Date: 20240829
  Transmission Date: 20241016
  Serious: Yes (Other)
  Sender: CELLTRION
  Company Number: BR-CELLTRION INC.-2023BR002652

PATIENT

DRUGS (7)
  1. INFLIXIMAB [Suspect]
     Active Substance: INFLIXIMAB
     Indication: Colitis ulcerative
     Dosage: 4 AMPOULES OF 100 MG (400 MG IN TOTAL) EVERY 4 WEEKS
     Route: 042
     Dates: start: 20220905
  2. INFLIXIMAB [Suspect]
     Active Substance: INFLIXIMAB
     Dosage: 4 AMPOULES OF 100 MG (400 MG IN TOTAL) EVERY 4 WEEKS
     Route: 042
     Dates: start: 20240408
  3. AMITRIPTYLINE HYDROCHLORIDE [Concomitant]
     Active Substance: AMITRIPTYLINE HYDROCHLORIDE
     Indication: Anxiety
     Dosage: 1 CAPSULE AT NIGHT (STARTED: 2 YEARS AGO)
     Route: 048
  4. LAMOTRIGINE [Concomitant]
     Active Substance: LAMOTRIGINE
     Indication: Relaxation therapy
     Dosage: 1 CAPSULE AT DAY (START DATE: 2 YEARS AGO)
     Route: 048
  5. AZATHIOPRINE [Concomitant]
     Active Substance: AZATHIOPRINE
     Indication: Colitis ulcerative
     Dosage: 3 TABLETS A DAY
     Route: 048
  6. ATACAND [Concomitant]
     Active Substance: CANDESARTAN CILEXETIL
     Indication: Blood pressure measurement
     Dosage: 1 TABLET A DAY
     Route: 048
     Dates: start: 202405
  7. PITAVASTATIN [Concomitant]
     Active Substance: PITAVASTATIN
     Indication: Blood cholesterol
     Dosage: 1 TABLET A DAY
     Route: 048
     Dates: start: 202402

REACTIONS (4)
  - Haematochezia [Unknown]
  - Myositis [Recovered/Resolved]
  - Intentional dose omission [Unknown]
  - Intentional product use issue [Unknown]

NARRATIVE: CASE EVENT DATE: 20221201
